FAERS Safety Report 6812681-3 (Version None)
Quarter: 2010Q3

REPORT INFORMATION
  Report Type: 
  Country: None (occurrence: None)
  Receive Date: 20100701
  Receipt Date: 20100623
  Transmission Date: 20110219
  Serious: Yes (Death)
  Sender: FDA-Public Use
  Company Number: BR-ROCHE-711581

PATIENT
  Age: 35 Year
  Sex: Female

DRUGS (1)
  1. TAMIFLU [Suspect]
     Indication: H1N1 INFLUENZA
     Route: 065
     Dates: start: 20100619, end: 20100620

REACTIONS (2)
  - ACUTE RESPIRATORY FAILURE [None]
  - HAEMORRHAGE [None]
